FAERS Safety Report 7657174-9 (Version None)
Quarter: 2011Q3

REPORT INFORMATION
  Report Type: 
  Country: None (occurrence: None)
  Receive Date: 20110804
  Receipt Date: 20110726
  Transmission Date: 20111222
  Serious: Yes (Other)
  Sender: FDA-Public Use
  Company Number: US-SANOFI-AVENTIS-2011SA048585

PATIENT
  Sex: Female
  Weight: 104.3 kg

DRUGS (8)
  1. PLAVIX [Suspect]
     Indication: ANTICOAGULANT THERAPY
     Route: 048
     Dates: start: 20100101
  2. ASPIRIN [Suspect]
     Dates: start: 20100101, end: 20110201
  3. ISOSORBIDE DINITRATE [Concomitant]
     Indication: BLOOD PRESSURE ABNORMAL
     Route: 048
  4. HYDRALAZINE HCL [Concomitant]
     Route: 048
  5. ACTOS [Suspect]
     Route: 048
     Dates: start: 20010101, end: 20110525
  6. HYDROCHLOROTHIAZIDE [Concomitant]
     Indication: BLOOD PRESSURE ABNORMAL
     Route: 048
  7. PRAVASTATIN [Concomitant]
  8. MICARDIS [Concomitant]
     Indication: BLOOD PRESSURE ABNORMAL
     Route: 048

REACTIONS (8)
  - ANAEMIA [None]
  - DYSPNOEA [None]
  - PAIN IN EXTREMITY [None]
  - WEIGHT INCREASED [None]
  - FATIGUE [None]
  - FLUID RETENTION [None]
  - HAEMORRHAGE [None]
  - ASTHENIA [None]
